FAERS Safety Report 16950815 (Version 2)
Quarter: 2019Q4

REPORT INFORMATION
  Report Type: Spontaneous
  Country: AT (occurrence: AT)
  Receive Date: 20191023
  Receipt Date: 20191112
  Transmission Date: 20200122
  Serious: Yes (Other)
  Sender: FDA-Public Use
  Company Number: AT-BRISTOL-MYERS SQUIBB COMPANY-BMS-2019-099164

PATIENT
  Sex: Male
  Weight: 109 kg

DRUGS (3)
  1. JAKAVI [Interacting]
     Active Substance: RUXOLITINIB
     Indication: RHEUMATIC DISORDER
     Dosage: UNK
     Route: 065
     Dates: start: 201709
  2. ORENCIA [Suspect]
     Active Substance: ABATACEPT
     Indication: RHEUMATIC DISORDER
     Dosage: UNAVAILABLE
     Route: 065
     Dates: end: 20190901
  3. METHOTREXATE. [Concomitant]
     Active Substance: METHOTREXATE
     Indication: PRODUCT USED FOR UNKNOWN INDICATION
     Route: 065

REACTIONS (5)
  - Performance status decreased [Unknown]
  - Drug interaction [Unknown]
  - Renal impairment [Recovering/Resolving]
  - Dyspnoea exertional [Unknown]
  - Fluid retention [Unknown]
